FAERS Safety Report 5132391-0 (Version None)
Quarter: 2006Q4

REPORT INFORMATION
  Report Type: 
  Country: None (occurrence: None)
  Receive Date: 20061017
  Receipt Date: 20060929
  Transmission Date: 20070319
  Serious: Yes (Death)
  Sender: FDA-Public Use
  Company Number: 2006CT000771

PATIENT
  Age: 30 Year
  Sex: Female

DRUGS (2)
  1. VENTAVIS [Suspect]
     Indication: PULMONARY HYPERTENSION
     Dosage: 1 AMPULE; X3; INH
     Route: 055
     Dates: start: 20060922, end: 20060922
  2. SILDENAFIL CITRATE [Concomitant]

REACTIONS (5)
  - NAUSEA [None]
  - OXYGEN SATURATION DECREASED [None]
  - SUDDEN DEATH [None]
  - SYNCOPE [None]
  - VOMITING [None]
